FAERS Safety Report 8252810-0 (Version None)
Quarter: 2012Q2

REPORT INFORMATION
  Report Type: 
  Country: None (occurrence: None)
  Receive Date: 20120402
  Receipt Date: 20120109
  Transmission Date: 20120825
  Serious: No
  Sender: FDA-Public Use
  Company Number: US-ABBOTT-11P-163-0885595-00

PATIENT
  Sex: Male
  Weight: 84.898 kg

DRUGS (7)
  1. PERCOCET [Concomitant]
     Indication: INTERVERTEBRAL DISC DEGENERATION
     Dosage: 1/2-1 TABLET, 1 IN 1 DAY
     Route: 048
  2. ANDROGEL [Suspect]
     Indication: BLOOD TESTOSTERONE DECREASED
     Dosage: 2 PACKETS DAILY,8 BOXES,1/2 MONTH SUPPLY
     Route: 061
     Dates: start: 20110801, end: 20111101
  3. ANDROGEL [Suspect]
     Indication: BLOOD TESTOSTERONE DECREASED
     Dosage: 1-2 PUMPS - 1 WK 3-4 PUMPS DAILY
     Route: 061
     Dates: start: 20111101
  4. TRAZODONE HCL [Concomitant]
     Indication: SLEEP DISORDER THERAPY
     Dosage: 1 IN 1 AT HOUR OF SLEEP
     Route: 048
  5. ALBUTEROL [Concomitant]
     Indication: PRODUCT USED FOR UNKNOWN INDICATION
  6. VERAPAMIL [Concomitant]
     Indication: HEART RATE INCREASED
     Route: 048
  7. CALCIUM CARBONATE [Concomitant]
     Indication: OSTEOPOROSIS
     Route: 048

REACTIONS (3)
  - FEELING ABNORMAL [None]
  - LOSS OF LIBIDO [None]
  - DRUG INEFFECTIVE [None]
